FAERS Safety Report 20580711 (Version 1)
Quarter: 2022Q1

REPORT INFORMATION
  Report Type: Spontaneous
  Country: ES (occurrence: ES)
  Receive Date: 20220311
  Receipt Date: 20220311
  Transmission Date: 20220424
  Serious: Yes (Other)
  Sender: FDA-Public Use
  Company Number: ES-ALKEM LABORATORIES LIMITED-ES-ALKEM-2022-01741

PATIENT
  Age: 69 Year
  Sex: Female

DRUGS (1)
  1. CEFUROXIME AXETIL [Suspect]
     Active Substance: CEFUROXIME AXETIL
     Indication: Product used for unknown indication
     Dosage: UNK (12.5 MG/0.1 ML )

REACTIONS (4)
  - Anterior chamber inflammation [Recovered/Resolved]
  - Corneal oedema [Recovered/Resolved]
  - Overdose [Unknown]
  - Product preparation issue [Unknown]
